FAERS Safety Report 21936597 (Version 2)
Quarter: 2024Q1

REPORT INFORMATION
  Report Type: Spontaneous
  Country: JP (occurrence: JP)
  Receive Date: 20230201
  Receipt Date: 20240301
  Transmission Date: 20240410
  Serious: Yes (Other)
  Sender: FDA-Public Use
  Company Number: JP-AMGEN-JPNSP2023016306

PATIENT
  Sex: Female

DRUGS (3)
  1. BLINCYTO [Suspect]
     Active Substance: BLINATUMOMAB
     Indication: B precursor type acute leukaemia
     Dosage: UNK, DRIP INFUSION
     Route: 040
     Dates: start: 20220902, end: 2022
  2. BLINCYTO [Suspect]
     Active Substance: BLINATUMOMAB
     Dosage: UNK, DRIP INFUSION
     Route: 040
     Dates: start: 20221014, end: 20221028
  3. BLINCYTO [Suspect]
     Active Substance: BLINATUMOMAB
     Dosage: 9 MICROGRAM, QD, DRIP INFUSION
     Route: 040

REACTIONS (6)
  - CSF cell count increased [Recovered/Resolved]
  - Altered state of consciousness [Recovered/Resolved]
  - Seizure [Recovered/Resolved]
  - Restlessness [Recovered/Resolved]
  - Pyrexia [Recovered/Resolved]
  - Neutrophil count decreased [Recovered/Resolved]

NARRATIVE: CASE EVENT DATE: 20220916
